FAERS Safety Report 6734670-X (Version None)
Quarter: 2010Q2

REPORT INFORMATION
  Report Type: 
  Country: None (occurrence: None)
  Receive Date: 20100520
  Receipt Date: 20100502
  Transmission Date: 20101027
  Serious: Yes (Other)
  Sender: FDA-Public Use
  Company Number: US-JNJFOC-20100501518

PATIENT
  Sex: Female

DRUGS (2)
  1. INFANTS TYLENOL [Suspect]
     Route: 065
  2. INFANTS TYLENOL [Suspect]
     Indication: PYREXIA
     Route: 065

REACTIONS (5)
  - BLOOD COUNT ABNORMAL [None]
  - DRUG INEFFECTIVE [None]
  - PRODUCT QUALITY ISSUE [None]
  - PYREXIA [None]
  - RASH [None]
